FAERS Safety Report 26088351 (Version 2)
Quarter: 2025Q4

REPORT INFORMATION
  Report Type: Spontaneous
  Country: EU (occurrence: None)
  Receive Date: 20251125
  Receipt Date: 20251201
  Transmission Date: 20260119
  Serious: Yes (Other)
  Sender: AMERICAN REGENT
  Company Number: EU-AMERICAN REGENT INC-2025004105

PATIENT
  Age: 91 Year
  Sex: Female
  Weight: 61.6 kg

DRUGS (1)
  1. FERINJECT [Suspect]
     Active Substance: FERRIC CARBOXYMALTOSE
     Indication: Blood loss anaemia
     Dosage: 500 MILLIGRAM, QD
     Dates: start: 20251016, end: 20251016

REACTIONS (2)
  - Hypothermia [Recovering/Resolving]
  - Hypotension [Recovering/Resolving]

NARRATIVE: CASE EVENT DATE: 20251016
